FAERS Safety Report 5211539-3 (Version None)
Quarter: 2007Q1

REPORT INFORMATION
  Report Type: 
  Country: None (occurrence: None)
  Receive Date: 20070117
  Receipt Date: 20070110
  Transmission Date: 20070707
  Serious: Yes (Hospitalization, Other)
  Sender: FDA-Public Use
  Company Number: FI-ABBOTT-06P-055-0349062-00

PATIENT
  Sex: Female

DRUGS (11)
  1. HUMIRA [Suspect]
     Indication: PSORIATIC ARTHROPATHY
     Route: 058
     Dates: start: 20060501, end: 20060929
  2. PARACETAMOL [Suspect]
     Indication: ANALGESIC EFFECT
     Dates: end: 20060929
  3. HYZAAR [Concomitant]
     Indication: HYPERTENSION
  4. BISOPROLOL FUMARATE [Concomitant]
     Indication: HYPERTENSION
  5. DIGOXIN [Concomitant]
     Indication: CARDIAC FAILURE
  6. CALCITONIN-SALMON [Concomitant]
     Indication: OSTEOPOROSIS
     Route: 045
  7. CALCICHEW FORTE [Concomitant]
     Indication: OSTEOPOROSIS
  8. PANTOPRAZOLE SODIUM [Concomitant]
     Indication: ANALGESIC EFFECT
  9. WARFARIN SODIUM [Concomitant]
     Indication: DRUG USE FOR UNKNOWN INDICATION
  10. WARFARIN SODIUM [Concomitant]
  11. IBUPROFEN [Concomitant]
     Indication: DRUG USE FOR UNKNOWN INDICATION

REACTIONS (15)
  - ABDOMINAL PAIN UPPER [None]
  - ARTHRITIS [None]
  - BACK PAIN [None]
  - BLOOD TEST ABNORMAL [None]
  - DIVERTICULUM [None]
  - FATIGUE [None]
  - GENERAL PHYSICAL HEALTH DETERIORATION [None]
  - HEPATITIS [None]
  - HEPATOTOXICITY [None]
  - INTERNATIONAL NORMALISED RATIO INCREASED [None]
  - MUSCULOSKELETAL PAIN [None]
  - ORAL INTAKE REDUCED [None]
  - TENDERNESS [None]
  - UPPER GASTROINTESTINAL HAEMORRHAGE [None]
  - VOMITING [None]
